FAERS Safety Report 5376224-6 (Version None)
Quarter: 2007Q2

REPORT INFORMATION
  Report Type: 
  Country: None (occurrence: None)
  Receive Date: 20070628
  Receipt Date: 20070618
  Transmission Date: 20071010
  Serious: Yes (Hospitalization)
  Sender: FDA-Public Use
  Company Number: 2007JP002497

PATIENT
  Age: 6 Month
  Sex: Male
  Weight: 5.3 kg

DRUGS (9)
  1. PROGRAF [Suspect]
     Indication: STEM CELL TRANSPLANT
     Dosage: 0.1 MG, BID, ORAL
     Route: 048
     Dates: start: 20030612, end: 20030623
  2. PROGRAF [Suspect]
     Indication: STEM CELL TRANSPLANT
     Dosage: 0.075 MG, CONTINOUS, IV DRIP
     Route: 041
     Dates: start: 20030501, end: 20030611
  3. PREDNISOLONE [Suspect]
     Indication: STEM CELL TRANSPLANT
     Dosage: 0.25 MG, BID
     Dates: start: 20030625, end: 20030707
  4. METHOTREXATE [Concomitant]
  5. SULFAMETHOXAZOLE AND TRIMETHOPRIM [Concomitant]
  6. TEICOPLANIN [Concomitant]
  7. MEROPENEM (MEROPENEM) [Concomitant]
  8. FLUCONAZOLE [Concomitant]
  9. FUNGUARD (MICAFUNGIN) [Concomitant]

REACTIONS (6)
  - ASPERGILLOSIS [None]
  - BRONCHITIS MORAXELLA [None]
  - COMPLICATIONS OF BONE MARROW TRANSPLANT [None]
  - FUNGAL ENDOCARDITIS [None]
  - GRAFT VERSUS HOST DISEASE [None]
  - INFECTION IN AN IMMUNOCOMPROMISED HOST [None]
